FAERS Safety Report 6405083-5 (Version None)
Quarter: 2009Q4

REPORT INFORMATION
  Report Type: 
  Country: None (occurrence: None)
  Receive Date: 20091019
  Receipt Date: 20091006
  Transmission Date: 20100525
  Serious: Yes (Disabling, Other)
  Sender: FDA-Public Use
  Company Number: US-ROCHE-607386

PATIENT
  Sex: Female

DRUGS (7)
  1. PEG-INTERFERON A-2A (RO 25-8310) [Suspect]
     Indication: HEPATITIS C
     Dosage: FORM: PREFILLED SYRINGE
     Route: 058
     Dates: start: 20081006, end: 20090907
  2. RIBAVIRIN [Suspect]
     Indication: HEPATITIS C
     Dosage: DIVIDED DOSES
     Route: 048
     Dates: start: 20081006, end: 20090907
  3. DOXYCYCLINE [Suspect]
     Indication: DRUG USE FOR UNKNOWN INDICATION
     Route: 065
     Dates: start: 20090217
  4. SEROQUEL [Suspect]
     Indication: DEPRESSION
     Route: 065
  5. SEROQUEL [Suspect]
     Dosage: DOSE DECREASED
     Route: 065
     Dates: start: 20090704
  6. METOPROLOL [Concomitant]
     Indication: BLOOD PRESSURE MANAGEMENT
  7. KLONOPIN [Concomitant]

REACTIONS (45)
  - AMNESIA [None]
  - ANAEMIA [None]
  - ANXIETY [None]
  - ASTHENIA [None]
  - BACTERIAL INFECTION [None]
  - BONE PAIN [None]
  - BRONCHITIS [None]
  - BURNING SENSATION [None]
  - CACHEXIA [None]
  - COUGH [None]
  - DECREASED APPETITE [None]
  - DEEP VEIN THROMBOSIS [None]
  - DEPRESSION [None]
  - DRY SKIN [None]
  - DYSGEUSIA [None]
  - DYSPNOEA [None]
  - FALL [None]
  - FATIGUE [None]
  - FEELING ABNORMAL [None]
  - FOOD INTOLERANCE [None]
  - HAEMORRHAGE [None]
  - HAIR DISORDER [None]
  - HERPES ZOSTER [None]
  - HYPOAESTHESIA [None]
  - HYPOTHYROIDISM [None]
  - IMMUNE SYSTEM DISORDER [None]
  - IMPAIRED DRIVING ABILITY [None]
  - INFLUENZA [None]
  - JOINT SWELLING [None]
  - MALAISE [None]
  - NAUSEA [None]
  - OEDEMA PERIPHERAL [None]
  - PAIN IN EXTREMITY [None]
  - PHOTOPHOBIA [None]
  - PHOTOSENSITIVITY REACTION [None]
  - PRURITUS [None]
  - PYREXIA [None]
  - RASH ERYTHEMATOUS [None]
  - RETINAL INJURY [None]
  - SKIN FISSURES [None]
  - SOMNOLENCE [None]
  - STOMATITIS [None]
  - VISUAL IMPAIRMENT [None]
  - WEIGHT DECREASED [None]
  - WHITE BLOOD CELL COUNT DECREASED [None]
